FAERS Safety Report 10072034 (Version 1)
Quarter: 2014Q2

REPORT INFORMATION
  Report Type: Spontaneous
  Country: GB (occurrence: None)
  Receive Date: 20140409
  Receipt Date: 20140409
  Transmission Date: 20141212
  Serious: Yes (Hospitalization)
  Sender: FDA-Public Use
  Company Number: FK201401258

PATIENT
  Age: 74 Year
  Sex: Male

DRUGS (9)
  1. METHOTREXATE [Suspect]
     Indication: PRODUCT USED FOR UNKNOWN INDICATION
     Route: 058
  2. PIPERACILLIN/TAZOBACTAM [Suspect]
  3. ALENDRONIC ACID [Concomitant]
  4. CLEXANE [Concomitant]
  5. FOLIC ACID [Concomitant]
  6. HYDROXYCHLOROQUINE SULFATE [Concomitant]
  7. LANSOPRAZOLE [Concomitant]
  8. MIRTAZAPINE [Concomitant]
  9. PREDNISOLONE [Concomitant]

REACTIONS (2)
  - Burning mouth syndrome [None]
  - Drug interaction [None]
